FAERS Safety Report 17164961 (Version 1)
Quarter: 2019Q4

REPORT INFORMATION
  Report Type: Report from Study
  Country: US (occurrence: US)
  Receive Date: 20191217
  Receipt Date: 20191217
  Transmission Date: 20200122
  Serious: Yes (Hospitalization)
  Sender: FDA-Public Use
  Company Number: US-EISAI MEDICAL RESEARCH-EC-2019-062973

PATIENT
  Sex: Male
  Weight: 116 kg

DRUGS (16)
  1. LENVIMA [Suspect]
     Active Substance: LENVATINIB
     Indication: BONE NEOPLASM
  2. LENVIMA [Suspect]
     Active Substance: LENVATINIB
     Indication: RENAL CELL CARCINOMA
     Route: 048
     Dates: start: 20190920, end: 2019
  3. PENICILLIN [Concomitant]
     Active Substance: PENICILLIN
  4. AFINITOR [Concomitant]
     Active Substance: EVEROLIMUS
  5. AMOXICILLIN. [Concomitant]
     Active Substance: AMOXICILLIN
  6. ATORVASTATIN [Concomitant]
     Active Substance: ATORVASTATIN
  7. WARFARIN [Concomitant]
     Active Substance: WARFARIN
  8. SIMVASTATIN. [Concomitant]
     Active Substance: SIMVASTATIN
  9. SYNTHROID [Concomitant]
     Active Substance: LEVOTHYROXINE SODIUM
  10. METRONIDAZOLE. [Concomitant]
     Active Substance: METRONIDAZOLE
  11. METOPROLOL. [Concomitant]
     Active Substance: METOPROLOL
  12. FENOFIBRATE. [Concomitant]
     Active Substance: FENOFIBRATE
  13. LEVOTHYROXINE. [Concomitant]
     Active Substance: LEVOTHYROXINE
  14. IMODIUM A-D [Concomitant]
     Active Substance: LOPERAMIDE HYDROCHLORIDE
  15. CLINDAMYCIN. [Concomitant]
     Active Substance: CLINDAMYCIN
  16. TOPROL XL [Concomitant]
     Active Substance: METOPROLOL SUCCINATE

REACTIONS (12)
  - Haemorrhoids [Unknown]
  - Diarrhoea [Unknown]
  - Blood pressure fluctuation [Unknown]
  - Abdominal pain upper [Unknown]
  - Gastrointestinal disorder [Unknown]
  - Rash [Unknown]
  - Constipation [Not Recovered/Not Resolved]
  - Cough [Not Recovered/Not Resolved]
  - Oropharyngeal pain [Not Recovered/Not Resolved]
  - Abdominal pain lower [Not Recovered/Not Resolved]
  - Pain in extremity [Unknown]
  - Haemoglobin increased [Unknown]

NARRATIVE: CASE EVENT DATE: 2019
